FAERS Safety Report 5674351-7 (Version None)
Quarter: 2008Q2

REPORT INFORMATION
  Report Type: 
  Country: None (occurrence: None)
  Receive Date: 20080229
  Receipt Date: 20071121
  Transmission Date: 20081010
  Serious: Yes (Other)
  Sender: FDA-Public Use
  Company Number: 071127-0001304

PATIENT
  Sex: Female

DRUGS (5)
  1. INDOCIN I.V. [Suspect]
     Indication: PATENT DUCTUS ARTERIOSUS
     Dosage: 0.1 MG/KG;
     Dates: start: 20071024, end: 20071026
  2. INDOCIN I.V. [Suspect]
     Indication: PROPHYLAXIS
     Dosage: 0.1 MG/KG;
     Dates: start: 20071024, end: 20071026
  3. DOPAMINE HCL [Concomitant]
  4. HYDROCORTISONE [Concomitant]
  5. SURFACTANT [Concomitant]

REACTIONS (2)
  - GASTROINTESTINAL PERFORATION [None]
  - HAEMORRHAGE INTRACRANIAL [None]
